FAERS Safety Report 4915705-3 (Version None)
Quarter: 2006Q1

REPORT INFORMATION
  Report Type: 
  Country: None (occurrence: None)
  Receive Date: 20060213
  Receipt Date: 20060130
  Transmission Date: 20060701
  Serious: Yes (Hospitalization)
  Sender: FDA-Public Use
  Company Number: 2006P1000081

PATIENT
  Age: 48 Year
  Sex: Male
  Weight: 98 kg

DRUGS (6)
  1. RETEPLASE (RETEPLASE) [Suspect]
     Indication: ACUTE MYOCARDIAL INFARCTION
     Dosage: SEE IMAGE
     Route: 042
     Dates: start: 20050704, end: 20050704
  2. ABCIXIMAB (ABCIXIMAB) [Suspect]
     Indication: ACUTE MYOCARDIAL INFARCTION
     Dosage: SEE IMAGE
     Route: 042
     Dates: start: 20050704
  3. HEPARIN [Concomitant]
  4. ASPIRIN [Concomitant]
  5. BETA BLOCKING AGENTS [Concomitant]
  6. CHOLESTEROL- AND TRIGLYCERIDE REDUCERS [Concomitant]

REACTIONS (2)
  - AV DISSOCIATION [None]
  - INTRACARDIAC THROMBUS [None]
